FAERS Safety Report 10068486 (Version 1)
Quarter: 2014Q2

REPORT INFORMATION
  Report Type: Spontaneous
  Country: PT (occurrence: PT)
  Receive Date: 20140409
  Receipt Date: 20140409
  Transmission Date: 20141212
  Serious: Yes (Other)
  Sender: FDA-Public Use
  Company Number: PT-JNJFOC-20140319150

PATIENT
  Sex: Male

DRUGS (2)
  1. ZYTIGA [Suspect]
     Indication: PROSTATE CANCER METASTATIC
     Route: 048
     Dates: start: 20111101, end: 20140215
  2. PREDNISOLONE [Concomitant]
     Route: 065

REACTIONS (4)
  - Hypokalaemia [Unknown]
  - Oedema [Unknown]
  - Nausea [Unknown]
  - Constipation [Unknown]
